FAERS Safety Report 15606199 (Version 1)
Quarter: 2018Q4

REPORT INFORMATION
  Report Type: Other
  Country: CN (occurrence: CN)
  Receive Date: 20181112
  Receipt Date: 20181112
  Transmission Date: 20190205
  Serious: Yes (Hospitalization)
  Sender: FDA-Public Use
  Company Number: CN-GUARDIAN DRUG COMPANY-2058713

PATIENT
  Age: 40 Year
  Sex: Female

DRUGS (1)
  1. CHILDRENS IBUPROFEN [Suspect]
     Active Substance: IBUPROFEN
     Indication: MYALGIA
     Route: 048

REACTIONS (4)
  - Drug-induced liver injury [Recovering/Resolving]
  - Vanishing bile duct syndrome [Unknown]
  - Cholestasis [Recovering/Resolving]
  - Hyperlipidaemia [Not Recovered/Not Resolved]
